FAERS Safety Report 10330864 (Version 1)
Quarter: 2014Q3

REPORT INFORMATION
  Report Type: Spontaneous
  Country: US (occurrence: None)
  Receive Date: 20140721
  Receipt Date: 20140721
  Transmission Date: 20150326
  Serious: Yes (Death)
  Sender: FDA-Public Use
  Company Number: None

PATIENT
  Age: 79 Year
  Sex: Female

DRUGS (2)
  1. ASPIRIN. [Suspect]
     Active Substance: ASPIRIN
     Indication: ATRIAL FIBRILLATION
     Route: 048
  2. WARFARIN [Suspect]
     Active Substance: WARFARIN
     Indication: ATRIAL FIBRILLATION
     Route: 048

REACTIONS (6)
  - Vomiting [None]
  - Influenza like illness [None]
  - Cerebral haemorrhage [None]
  - Brain midline shift [None]
  - Unresponsive to stimuli [None]
  - Diarrhoea [None]

NARRATIVE: CASE EVENT DATE: 20140225
